FAERS Safety Report 6718046-7 (Version None)
Quarter: 2010Q2

REPORT INFORMATION
  Report Type: 
  Country: None (occurrence: None)
  Receive Date: 20100510
  Receipt Date: 20100503
  Transmission Date: 20101027
  Serious: Yes (Hospitalization)
  Sender: FDA-Public Use
  Company Number: B0651898A

PATIENT
  Age: 3 Month
  Sex: Male
  Weight: 6.3 kg

DRUGS (1)
  1. CLOBETASOL PROPIONATE [Suspect]
     Indication: SKIN LESION
     Route: 061

REACTIONS (17)
  - ADRENAL SUPPRESSION [None]
  - BLOOD CORTICOTROPHIN ABNORMAL [None]
  - BLOOD CORTISOL DECREASED [None]
  - CUSHING'S SYNDROME [None]
  - CUSHINGOID [None]
  - ESCHERICHIA INFECTION [None]
  - GROWTH RETARDATION [None]
  - HEPATIC ENZYME INCREASED [None]
  - HYPERCHOLESTEROLAEMIA [None]
  - HYPERTRICHOSIS [None]
  - HYPERTRIGLYCERIDAEMIA [None]
  - INCORRECT DRUG ADMINISTRATION DURATION [None]
  - LOW DENSITY LIPOPROTEIN INCREASED [None]
  - OBESITY [None]
  - TELANGIECTASIA [None]
  - URINARY TRACT INFECTION [None]
  - WEIGHT INCREASED [None]
